FAERS Safety Report 8220957-0 (Version None)
Quarter: 2012Q1

REPORT INFORMATION
  Report Type: 
  Country: None (occurrence: None)
  Receive Date: 20120320
  Receipt Date: 20120316
  Transmission Date: 20120608
  Serious: No
  Sender: FDA-Public Use
  Company Number: US-BAYER-2012-026619

PATIENT
  Age: 65 Year
  Sex: Female

DRUGS (2)
  1. DABIGATRAN [Suspect]
  2. BETAPACE [Suspect]
     Dosage: 80 MG, UNK
     Route: 048
     Dates: start: 20111003

REACTIONS (1)
  - ABDOMINAL DISCOMFORT [None]
